FAERS Safety Report 7306290-X (Version None)
Quarter: 2011Q1

REPORT INFORMATION
  Report Type: 
  Country: None (occurrence: None)
  Receive Date: 20110222
  Receipt Date: 20110210
  Transmission Date: 20110831
  Serious: Yes (Other)
  Sender: FDA-Public Use
  Company Number: PHHY2011FR11238

PATIENT

DRUGS (1)
  1. RASILEZ [Suspect]

REACTIONS (1)
  - RENAL FAILURE [None]
